FAERS Safety Report 11892705 (Version 11)
Quarter: 2017Q3

REPORT INFORMATION
  Report Type: Spontaneous
  Country: GB (occurrence: GB)
  Receive Date: 20160106
  Receipt Date: 20170810
  Transmission Date: 20171127
  Serious: Yes (Hospitalization, Other)
  Sender: FDA-Public Use
  Company Number: GB-TAKEDA-2015MPI008804AA

PATIENT
  Age: 67 Year
  Sex: Female
  Weight: 94 kg

DRUGS (136)
  1. VELCADE [Suspect]
     Active Substance: BORTEZOMIB
     Dosage: 2.7 MG, UNK
     Route: 058
     Dates: start: 20151112, end: 20151112
  2. VELCADE [Suspect]
     Active Substance: BORTEZOMIB
     Dosage: UNK
     Route: 058
     Dates: start: 20160315
  3. PREDNISOLONE. [Suspect]
     Active Substance: PREDNISOLONE
     Indication: PLASMA CELL MYELOMA
     Dosage: 125 MG, UNK
     Route: 048
     Dates: start: 20151102, end: 20151105
  4. PREDNISOLONE. [Suspect]
     Active Substance: PREDNISOLONE
     Dosage: 120 MG, UNK
     Route: 048
     Dates: start: 20151222, end: 20151224
  5. DARATUMUMAB [Suspect]
     Active Substance: DARATUMUMAB
     Indication: PLASMA CELL MYELOMA
     Dosage: 1570 MG, UNK
     Route: 042
     Dates: start: 20151102, end: 20160201
  6. MELPHALAN. [Suspect]
     Active Substance: MELPHALAN
     Indication: PLASMA CELL MYELOMA
     Dosage: 18 MG, UNK
     Route: 048
     Dates: start: 20151102, end: 20160201
  7. MAGNESIUM GLYCEROPHOSPHATE [Concomitant]
     Active Substance: MAGNESIUM GLYCEROPHOSPHATE
     Indication: PROPHYLAXIS
     Dosage: 10 ML, BID
     Route: 048
     Dates: start: 20160129
  8. OMEPRAZOLE. [Concomitant]
     Active Substance: OMEPRAZOLE
     Indication: GASTROOESOPHAGEAL REFLUX DISEASE
     Dosage: 20 MG, QD
     Route: 048
     Dates: start: 2011
  9. PREDNISOLONE. [Concomitant]
     Active Substance: PREDNISOLONE
     Indication: PROPHYLAXIS
     Dosage: UNK
     Route: 065
  10. LEVOTHYROXINE. [Concomitant]
     Active Substance: LEVOTHYROXINE
     Indication: HYPOTHYROIDISM
     Dosage: 50 MG, QD
     Route: 050
     Dates: start: 1995
  11. LEVOTHYROXINE. [Concomitant]
     Active Substance: LEVOTHYROXINE
     Dosage: 25 UNK, UNK
     Route: 050
     Dates: start: 1995
  12. AUGMENTIN [Concomitant]
     Active Substance: AMOXICILLIN\CLAVULANATE POTASSIUM
     Indication: LOWER RESPIRATORY TRACT INFECTION
     Dosage: 500 MG, BID
     Route: 065
     Dates: start: 20151205, end: 20151210
  13. ACICLOVIR [Concomitant]
     Active Substance: ACYCLOVIR
     Indication: SEPSIS
     Dosage: 400 MG, BID
     Route: 042
     Dates: start: 20151205, end: 20151216
  14. ACICLOVIR [Concomitant]
     Active Substance: ACYCLOVIR
     Dosage: 200 MG, TID
     Route: 042
     Dates: start: 20160212
  15. CO-AMOXICLAVE [Concomitant]
     Active Substance: AMOXICILLIN\CLAVULANATE POTASSIUM
     Indication: PROPHYLAXIS
     Dosage: 625 MG, QID
     Route: 048
     Dates: start: 20151205, end: 20151212
  16. CO-AMOXICLAVE [Concomitant]
     Active Substance: AMOXICILLIN\CLAVULANATE POTASSIUM
     Indication: UPPER RESPIRATORY TRACT INFECTION
  17. MAGNESIUM GLYCEROPHOSPHATE [Concomitant]
     Active Substance: MAGNESIUM GLYCEROPHOSPHATE
     Dosage: 500 MG, BID
     Route: 048
     Dates: start: 20151204, end: 20151210
  18. FOLIC ACID. [Concomitant]
     Active Substance: FOLIC ACID
     Indication: MACROCYTOSIS
     Dosage: 5 MG, QD
     Route: 048
     Dates: start: 20160129
  19. VITAMIN B COMPLEX [Concomitant]
     Active Substance: CYANOCOBALAMIN\DEXPANTHENOL\NIACINAMIDE\PYRIDOXINE HYDROCHLORIDE\RIBOFLAVIN 5^-PHOSPHATE SODIUM\THIAMINE HYDROCHLORIDE\VITAMIN B COMPLEX
     Indication: NEUROPATHY PERIPHERAL
     Dosage: UNK
     Route: 048
     Dates: start: 20160129
  20. OSELTAMIVIR [Concomitant]
     Active Substance: OSELTAMIVIR
     Indication: SEPSIS
     Dosage: 75 MG, BID
     Route: 065
     Dates: start: 20160204, end: 20160215
  21. GLUCOSE [Concomitant]
     Active Substance: DEXTROSE
     Dosage: UNK
     Route: 042
  22. MIDAZOLAM [Concomitant]
     Active Substance: MIDAZOLAM HYDROCHLORIDE
     Indication: PAIN IN EXTREMITY
     Dosage: 50 MG, QD
     Route: 042
     Dates: start: 20160205
  23. PLASMA-LYTE [Concomitant]
     Active Substance: ELECTROLYTES NOS
     Indication: PROPHYLAXIS
     Dosage: UNK
     Route: 065
  24. MAGNOPLASM [Concomitant]
     Indication: BLOOD MAGNESIUM DECREASED
     Dosage: UNK, QID
     Route: 048
     Dates: start: 20151205, end: 20151216
  25. VELCADE [Suspect]
     Active Substance: BORTEZOMIB
     Dosage: 2.7 MG, UNK
     Route: 058
     Dates: start: 20151123, end: 20151123
  26. VELCADE [Suspect]
     Active Substance: BORTEZOMIB
     Dosage: UNK
     Route: 058
     Dates: start: 20160229, end: 20160229
  27. ATORVASTATIN [Concomitant]
     Active Substance: ATORVASTATIN
     Indication: HYPERCHOLESTEROLAEMIA
     Dosage: 40 MG, QD
     Route: 048
     Dates: start: 2005, end: 20151207
  28. LEVOTHYROXINE. [Concomitant]
     Active Substance: LEVOTHYROXINE
     Indication: PROPHYLAXIS
     Dosage: 50 MG, UNK
     Route: 050
     Dates: start: 1995
  29. LEVOTHYROXINE. [Concomitant]
     Active Substance: LEVOTHYROXINE
     Dosage: 75 MG, QD
     Route: 050
     Dates: start: 20160205
  30. ACICLOVIR [Concomitant]
     Active Substance: ACYCLOVIR
     Indication: ACUTE CORONARY SYNDROME
     Dosage: 400 MG, BID
     Route: 042
     Dates: start: 20151205, end: 20151216
  31. ACICLOVIR [Concomitant]
     Active Substance: ACYCLOVIR
     Dosage: 200 MG, TID
     Route: 042
     Dates: start: 20160212
  32. SENNA                              /00142201/ [Concomitant]
     Active Substance: SENNA LEAF
     Indication: CONSTIPATION
     Dosage: UNK
     Route: 048
     Dates: start: 20151204
  33. FUROSEMIDE. [Concomitant]
     Active Substance: FUROSEMIDE
     Dosage: 40 MG, QD
     Route: 048
     Dates: start: 20160112, end: 20160129
  34. CLONIDINE. [Concomitant]
     Active Substance: CLONIDINE
     Indication: HYPERTENSION
     Dosage: 750 MG, QD
     Route: 042
     Dates: start: 20160209
  35. ATROVENT [Concomitant]
     Active Substance: IPRATROPIUM BROMIDE
     Indication: CHRONIC OBSTRUCTIVE PULMONARY DISEASE
     Dosage: 500 MG, QID
     Route: 055
     Dates: start: 20160212
  36. NORMAL SALINE [Concomitant]
     Active Substance: SODIUM CHLORIDE
     Indication: PROPHYLAXIS
     Dosage: UNK
     Route: 065
  37. FILGRASTIM BS [Concomitant]
     Active Substance: FILGRASTIM
     Indication: NEUTROPENIA
     Dosage: 480 ?G, QD
     Route: 058
     Dates: start: 20151113, end: 20151118
  38. VELCADE [Suspect]
     Active Substance: BORTEZOMIB
     Dosage: UNK
     Route: 058
     Dates: start: 20160309, end: 20160309
  39. MELPHALAN. [Suspect]
     Active Substance: MELPHALAN
     Dosage: 18 MG, UNK
     Route: 048
     Dates: start: 20160201, end: 20160204
  40. MAGNESIUM GLYCEROPHOSPHATE [Concomitant]
     Active Substance: MAGNESIUM GLYCEROPHOSPHATE
     Indication: HYPOMAGNESAEMIA
  41. CIPROFLOXACIN. [Concomitant]
     Active Substance: CIPROFLOXACIN
     Indication: INFECTION PROPHYLAXIS
     Dosage: 500 MG, BID
     Route: 048
     Dates: start: 20151113
  42. METFORMIN [Concomitant]
     Active Substance: METFORMIN HYDROCHLORIDE
     Dosage: 500 MG, QD
     Route: 048
     Dates: start: 20160213
  43. ATORVASTATIN [Concomitant]
     Active Substance: ATORVASTATIN
     Dosage: 20 MG, UNK
     Route: 048
     Dates: start: 20160205
  44. LEVOTHYROXINE. [Concomitant]
     Active Substance: LEVOTHYROXINE
     Dosage: 75 MG, UNK
     Route: 050
     Dates: start: 20160205
  45. FLUCONAZOLE. [Concomitant]
     Active Substance: FLUCONAZOLE
     Indication: BACK PAIN
  46. ACICLOVIR [Concomitant]
     Active Substance: ACYCLOVIR
     Dosage: 800 MG, BID
     Route: 042
     Dates: start: 20160204, end: 20160212
  47. ACICLOVIR [Concomitant]
     Active Substance: ACYCLOVIR
     Dosage: 800 MG, BID
     Route: 042
     Dates: start: 20160204, end: 20160212
  48. CYCLIZINE [Concomitant]
     Active Substance: CYCLIZINE
     Indication: NAUSEA
     Dosage: 50 MG, TID
     Route: 042
     Dates: start: 20151206, end: 20151210
  49. ASPIRIN                            /00002701/ [Concomitant]
     Active Substance: ASPIRIN
     Indication: ACUTE CORONARY SYNDROME
     Dosage: 75 MG, UNK
     Route: 048
     Dates: start: 20160205, end: 20160215
  50. REMIFENTANIL [Concomitant]
     Active Substance: REMIFENTANIL
     Indication: PAIN IN EXTREMITY
     Dosage: 2 MG, QD
     Route: 042
     Dates: start: 20160208
  51. HYDROCORTISONE. [Concomitant]
     Active Substance: HYDROCORTISONE
     Dosage: 50 MG, BID
     Route: 042
     Dates: start: 20160212
  52. AMIKACIN [Concomitant]
     Active Substance: AMIKACIN
     Indication: SEPSIS
     Dosage: 650 MG, QD
     Route: 042
     Dates: start: 20160205, end: 20160208
  53. FENTANYL. [Concomitant]
     Active Substance: FENTANYL
     Indication: PAIN IN EXTREMITY
     Dosage: 2500 ?G, QD
     Route: 042
     Dates: start: 20160205
  54. GLUCOSE [Concomitant]
     Active Substance: DEXTROSE
     Indication: TYPE 2 DIABETES MELLITUS
     Dosage: UNK, QD
     Route: 042
     Dates: start: 20160204
  55. ATROVENT [Concomitant]
     Active Substance: IPRATROPIUM BROMIDE
     Dosage: UNK
     Route: 055
  56. ACICLOVIR [Concomitant]
     Active Substance: ACYCLOVIR
     Indication: ACUTE CORONARY SYNDROME
     Dosage: 200 MG, TID
     Route: 048
     Dates: start: 20160212
  57. CO-DYDRAMOL [Concomitant]
     Active Substance: ACETAMINOPHEN\DIHYDROCODEINE
     Indication: BACK PAIN
     Dosage: UNK
     Route: 048
     Dates: start: 20151114
  58. VELCADE [Suspect]
     Active Substance: BORTEZOMIB
     Dosage: 2.7 MG, UNK
     Route: 058
     Dates: start: 20151109, end: 20151109
  59. VELCADE [Suspect]
     Active Substance: BORTEZOMIB
     Dosage: UNK
     Route: 058
     Dates: start: 20160208, end: 20160208
  60. DOXYCYCLINE. [Concomitant]
     Active Substance: DOXYCYCLINE
     Indication: UPPER RESPIRATORY TRACT INFECTION
  61. ACICLOVIR [Concomitant]
     Active Substance: ACYCLOVIR
     Dosage: 800 MG, BID
     Route: 042
     Dates: start: 20160204, end: 20160216
  62. FUROSEMIDE. [Concomitant]
     Active Substance: FUROSEMIDE
     Indication: PERIPHERAL SWELLING
     Dosage: 40 MG, QD
     Route: 042
     Dates: start: 20160111, end: 20160111
  63. FONDAPARINUX [Concomitant]
     Active Substance: FONDAPARINUX
     Indication: THROMBOSIS PROPHYLAXIS
     Dosage: 2.5 MG, QD
     Route: 058
     Dates: start: 20160205, end: 20160211
  64. CLONIDINE. [Concomitant]
     Active Substance: CLONIDINE
     Dosage: UNK
     Route: 042
  65. SALBUTAMOL [Concomitant]
     Active Substance: ALBUTEROL
     Indication: CHRONIC OBSTRUCTIVE PULMONARY DISEASE
     Dosage: 5 MG, QID
     Route: 055
     Dates: start: 20160212
  66. HYDROXOCOBALAMIN                   /00091803/ [Concomitant]
     Indication: PROPHYLAXIS
     Dosage: 1 MG, UNK
     Route: 042
     Dates: start: 20160201, end: 20160201
  67. VELCADE [Suspect]
     Active Substance: BORTEZOMIB
     Indication: PLASMA CELL MYELOMA
     Dosage: 2.7 MG, UNK
     Route: 058
     Dates: start: 20151102, end: 20151102
  68. VELCADE [Suspect]
     Active Substance: BORTEZOMIB
     Dosage: 2.7 MG, UNK
     Route: 058
     Dates: start: 20151126, end: 20151126
  69. VELCADE [Suspect]
     Active Substance: BORTEZOMIB
     Dosage: 2.7 MG, UNK
     Route: 058
     Dates: start: 20151130, end: 20151130
  70. CLARITHROMYCIN. [Concomitant]
     Active Substance: CLARITHROMYCIN
     Indication: LOWER RESPIRATORY TRACT INFECTION
     Dosage: 500 MG, UNK
     Route: 048
     Dates: start: 20151204, end: 20151210
  71. LOSARTAN. [Concomitant]
     Active Substance: LOSARTAN
     Indication: HYPERTENSION
     Dosage: 100 MG, QD
     Route: 048
     Dates: start: 2010
  72. AMLODIPINE [Concomitant]
     Active Substance: AMLODIPINE BESYLATE
     Indication: HYPERTENSION
     Dosage: 2.5 MG, QD
     Route: 048
     Dates: start: 2005, end: 20051207
  73. ATORVASTATIN [Concomitant]
     Active Substance: ATORVASTATIN
     Dosage: 20 MG, QD
     Route: 048
     Dates: start: 20160205
  74. ATORVASTATIN [Concomitant]
     Active Substance: ATORVASTATIN
     Dosage: 20 MG, UNK
     Route: 048
     Dates: start: 20160205
  75. ACICLOVIR [Concomitant]
     Active Substance: ACYCLOVIR
     Indication: PROPHYLAXIS
     Dosage: 400 MG, BID
     Route: 042
     Dates: start: 20151205, end: 20151216
  76. MAGNESIUM GLYCEROPHOSPHATE [Concomitant]
     Active Substance: MAGNESIUM GLYCEROPHOSPHATE
     Dosage: 10 ML, BID
     Route: 048
     Dates: start: 20160129
  77. ONDANSETRON [Concomitant]
     Active Substance: ONDANSETRON
     Indication: NAUSEA
     Dosage: 8 MG, TID
     Route: 042
     Dates: start: 20151206, end: 20151210
  78. ONDANSETRON [Concomitant]
     Active Substance: ONDANSETRON
     Indication: PROPHYLAXIS
  79. VITAMIN B COMPLEX [Concomitant]
     Active Substance: CYANOCOBALAMIN\DEXPANTHENOL\NIACINAMIDE\PYRIDOXINE HYDROCHLORIDE\RIBOFLAVIN 5^-PHOSPHATE SODIUM\THIAMINE HYDROCHLORIDE\VITAMIN B COMPLEX
     Indication: PROPHYLAXIS
     Dosage: UNK
     Route: 048
     Dates: start: 20160129
  80. OXYNORM [Concomitant]
     Active Substance: OXYCODONE HYDROCHLORIDE
     Indication: NEUROPATHY PERIPHERAL
     Dosage: 5 MG, UNK
     Route: 048
     Dates: start: 20160129
  81. ZOMETA [Concomitant]
     Active Substance: ZOLEDRONIC ACID
     Indication: PLASMA CELL MYELOMA
     Dosage: 4 MG, MONTHLY
     Route: 042
     Dates: start: 20160131
  82. TEICOPLANIN [Concomitant]
     Active Substance: TEICOPLANIN
     Indication: SEPSIS
     Dosage: 1 G, QD
     Route: 042
     Dates: start: 20160204, end: 20160211
  83. INSULIN [Concomitant]
     Active Substance: INSULIN NOS
     Dosage: UNK
     Route: 042
  84. SALBUTAMOL [Concomitant]
     Active Substance: ALBUTEROL
     Dosage: UNK
     Route: 055
  85. POTASSIUM CHLORIDE. [Concomitant]
     Active Substance: POTASSIUM CHLORIDE
     Indication: HYPOKALAEMIA
     Dosage: 400 ML, QD
     Route: 042
     Dates: start: 20160215
  86. AMOXICILLIN. [Concomitant]
     Active Substance: AMOXICILLIN
     Indication: UPPER RESPIRATORY TRACT INFECTION
     Dosage: 250 MG, TID
     Route: 048
     Dates: start: 20151204, end: 20151204
  87. AMOXICILLIN. [Concomitant]
     Active Substance: AMOXICILLIN
     Indication: LOWER RESPIRATORY TRACT INFECTION
  88. VELCADE [Suspect]
     Active Substance: BORTEZOMIB
     Dosage: 2.7 MG, UNK
     Route: 058
     Dates: start: 20151105, end: 20151105
  89. ATORVASTATIN [Concomitant]
     Active Substance: ATORVASTATIN
     Indication: PROPHYLAXIS
     Dosage: 40 MG, QD
     Route: 048
     Dates: start: 2005, end: 20151207
  90. BISOPROLOL [Concomitant]
     Active Substance: BISOPROLOL
     Indication: HYPERTENSION
     Dosage: 25 MG, QD
     Route: 048
     Dates: start: 2009, end: 20160205
  91. ACICLOVIR [Concomitant]
     Active Substance: ACYCLOVIR
     Dosage: 200 MG, TID
     Route: 042
     Dates: start: 20160212
  92. MAGNESIUM GLYCEROPHOSPHATE [Concomitant]
     Active Substance: MAGNESIUM GLYCEROPHOSPHATE
     Indication: HYPOMAGNESAEMIA
     Dosage: UNK UNK, QID
     Route: 048
     Dates: start: 20151205, end: 20151216
  93. CLARITHROMYCIN. [Concomitant]
     Active Substance: CLARITHROMYCIN
     Indication: SEPSIS
     Dosage: 500 MG, BID
     Route: 048
     Dates: start: 20160204, end: 20160208
  94. ALLOPURINOL. [Concomitant]
     Active Substance: ALLOPURINOL
     Indication: PROPHYLAXIS
     Dosage: 300 MG, QD
     Route: 048
     Dates: start: 20151205
  95. ADCAL D3 [Concomitant]
     Active Substance: CALCIUM CARBONATE\CHOLECALCIFEROL
     Indication: HYPOCALCAEMIA
     Dosage: UNK, QD
     Route: 048
     Dates: start: 20160129
  96. OXYCONTIN [Concomitant]
     Active Substance: OXYCODONE HYDROCHLORIDE
     Indication: NEUROPATHY PERIPHERAL
     Dosage: 5 MG, BID
     Route: 048
     Dates: start: 20160129
  97. ASPIRIN                            /00002701/ [Concomitant]
     Active Substance: ASPIRIN
     Indication: SEPSIS
     Dosage: 75 MG, UNK
     Route: 048
     Dates: start: 20160205, end: 20160215
  98. VITAMIN B12 [Concomitant]
     Active Substance: CYANOCOBALAMIN
     Indication: MACROCYTOSIS
     Dosage: 1 MG, UNK
     Route: 042
     Dates: start: 20160201, end: 20160201
  99. CLOPIDOGREL [Concomitant]
     Active Substance: CLOPIDOGREL BISULFATE
     Indication: SEPSIS
     Dosage: 75 MG, QD
     Route: 048
     Dates: start: 20160208, end: 20160211
  100. TAZOCIN [Concomitant]
     Active Substance: PIPERACILLIN SODIUM\TAZOBACTAM SODIUM
     Indication: LOWER RESPIRATORY TRACT INFECTION
     Dosage: 4.5 G, TID
     Route: 048
     Dates: start: 20151203, end: 20151210
  101. AUGMENTIN [Concomitant]
     Active Substance: AMOXICILLIN\CLAVULANATE POTASSIUM
     Indication: LOWER RESPIRATORY TRACT INFECTION
     Dosage: 500 MG, BID
     Route: 048
     Dates: start: 20151205, end: 20151210
  102. HYDROXOCOBALAMIN                   /00091803/ [Concomitant]
     Indication: MACROCYTOSIS
  103. VELCADE [Suspect]
     Active Substance: BORTEZOMIB
     Dosage: 2.7 MG, UNK
     Route: 058
     Dates: start: 20151229, end: 20151229
  104. VELCADE [Suspect]
     Active Substance: BORTEZOMIB
     Dosage: 2.6 MG, UNK
     Route: 058
     Dates: start: 20160111, end: 20160111
  105. METFORMIN [Concomitant]
     Active Substance: METFORMIN HYDROCHLORIDE
     Indication: TYPE 2 DIABETES MELLITUS
     Dosage: 500 MG, BID
     Route: 048
     Dates: start: 2011, end: 20160212
  106. OMEPRAZOLE. [Concomitant]
     Active Substance: OMEPRAZOLE
     Indication: ANTACID THERAPY
     Dosage: 20 MG, QD
     Route: 048
     Dates: start: 2011
  107. ATORVASTATIN [Concomitant]
     Active Substance: ATORVASTATIN
     Indication: BLOOD CHOLESTEROL
     Dosage: 40 MG, QD
     Route: 048
     Dates: start: 2005, end: 20151207
  108. FOLIC ACID. [Concomitant]
     Active Substance: FOLIC ACID
     Indication: PROPHYLAXIS
  109. CARBOCISTEINE [Concomitant]
     Active Substance: CARBOCYSTEINE
     Indication: PROPHYLAXIS
  110. HYDROCORTISONE. [Concomitant]
     Active Substance: HYDROCORTISONE
     Indication: ECZEMA
     Dosage: 50 MG, QID
     Route: 042
     Dates: start: 20160205, end: 20160211
  111. LANSOPRAZOLE. [Concomitant]
     Active Substance: LANSOPRAZOLE
     Indication: DYSPEPSIA
     Dosage: 30 MG, QD
     Route: 050
     Dates: start: 20160204
  112. MEROPENEM. [Concomitant]
     Active Substance: MEROPENEM
     Indication: SEPSIS
     Dosage: 1000 MG, QID
     Route: 042
     Dates: start: 20160205, end: 20160208
  113. NORADRENALIN                       /00127501/ [Concomitant]
     Active Substance: NOREPINEPHRINE\NOREPINEPHRINE BITARTRATE
     Indication: ACUTE CORONARY SYNDROME
     Dosage: 8 MG, QD
     Route: 042
     Dates: start: 20160204, end: 20160208
  114. POTASSIUM PHOSPHATES [Concomitant]
     Active Substance: POTASSIUM PHOSPHATE, DIBASIC\POTASSIUM PHOSPHATE, MONOBASIC
     Indication: DEHYDRATION
     Dosage: 1000 ML, QD
     Route: 042
     Dates: start: 20160204
  115. FLUCONAZOLE. [Concomitant]
     Active Substance: FLUCONAZOLE
     Indication: SEPSIS
     Dosage: 400 MG, QD
     Route: 042
     Dates: start: 20160204, end: 20160212
  116. CODEINE [Concomitant]
     Active Substance: CODEINE
     Indication: LOWER RESPIRATORY TRACT INFECTION
     Dosage: 30 MG, QID
     Route: 048
     Dates: start: 20151216, end: 20151230
  117. LIDOCAINE. [Concomitant]
     Active Substance: LIDOCAINE
     Indication: PAIN
     Dosage: UNK, QD
     Route: 061
     Dates: start: 20151216, end: 20151217
  118. VELCADE [Suspect]
     Active Substance: BORTEZOMIB
     Dosage: 2.6 MG, UNK
     Route: 058
     Dates: start: 20151222, end: 20151222
  119. VELCADE [Suspect]
     Active Substance: BORTEZOMIB
     Dosage: 2.6 MG, UNK
     Route: 058
     Dates: start: 20160118, end: 20160118
  120. VELCADE [Suspect]
     Active Substance: BORTEZOMIB
     Dosage: 2 MG, UNK
     Route: 058
     Dates: start: 20160201, end: 20160201
  121. PREDNISOLONE. [Suspect]
     Active Substance: PREDNISOLONE
     Dosage: 120 MG, UNK
     Route: 048
     Dates: start: 20160202, end: 20160204
  122. CLARITHROMYCIN. [Concomitant]
     Active Substance: CLARITHROMYCIN
     Indication: UPPER RESPIRATORY TRACT INFECTION
     Dosage: 500 MG, BID
     Route: 048
     Dates: start: 20151204, end: 20151210
  123. PREDNISOLONE. [Concomitant]
     Active Substance: PREDNISOLONE
     Indication: UPPER RESPIRATORY TRACT INFECTION
     Dosage: 5 MG, UNK
     Route: 048
     Dates: start: 2011
  124. DOXYCYCLINE. [Concomitant]
     Active Substance: DOXYCYCLINE
     Indication: PROPHYLAXIS
     Dosage: 100 MG, QD
     Route: 048
     Dates: start: 2011
  125. DOXYCYCLINE. [Concomitant]
     Active Substance: DOXYCYCLINE
     Indication: UPPER RESPIRATORY TRACT INFECTION
     Dosage: 100 MG, QD
     Route: 048
     Dates: start: 2011
  126. AUGMENTIN [Concomitant]
     Active Substance: AMOXICILLIN\CLAVULANATE POTASSIUM
     Indication: PROPHYLAXIS
     Dosage: UNK
     Route: 065
  127. FLUCONAZOLE. [Concomitant]
     Active Substance: FLUCONAZOLE
     Indication: SEPSIS
     Dosage: 1 G, QID
     Route: 048
     Dates: start: 20151204
  128. PARACETAMOL [Concomitant]
     Active Substance: ACETAMINOPHEN
     Indication: BACK PAIN
     Dosage: 1 G, QID
     Route: 048
     Dates: start: 20151204
  129. CARBOCISTEINE [Concomitant]
     Active Substance: CARBOCYSTEINE
     Indication: COUGH
     Dosage: 750 MG, TID
     Route: 050
     Dates: start: 20160207, end: 20160405
  130. CEFTRIAXONE. [Concomitant]
     Active Substance: CEFTRIAXONE
     Indication: SEPSIS
     Dosage: 2000 MG, QD
     Route: 042
     Dates: start: 20160208
  131. AMIODARONE [Concomitant]
     Active Substance: AMIODARONE
     Indication: ACUTE CORONARY SYNDROME
     Dosage: 25 MG, UNK
     Route: 042
     Dates: start: 20160207, end: 20160211
  132. INSULIN [Concomitant]
     Active Substance: INSULIN NOS
     Indication: TYPE 2 DIABETES MELLITUS
     Dosage: UNK, QD
     Route: 042
     Dates: start: 20160204
  133. MAGNESIUM [Concomitant]
     Active Substance: MAGNESIUM
     Indication: HYPOMAGNESAEMIA
     Dosage: UNK, QID
     Route: 048
     Dates: start: 20151205, end: 20151216
  134. SPIRONOLACTONE. [Concomitant]
     Active Substance: SPIRONOLACTONE
     Indication: ACUTE CORONARY SYNDROME
     Dosage: 100 MG, QD
     Route: 048
     Dates: start: 20160229, end: 20160405
  135. TAZOCIN [Concomitant]
     Active Substance: PIPERACILLIN SODIUM\TAZOBACTAM SODIUM
     Indication: SEPSIS
     Dosage: 4.5 MG, TID
     Route: 042
     Dates: start: 20160204, end: 20160208
  136. FUROSEMIDE. [Concomitant]
     Active Substance: FUROSEMIDE
     Indication: PERIPHERAL SWELLING
     Dosage: 40 MG, BID
     Route: 048
     Dates: start: 20160129, end: 20160229

REACTIONS (15)
  - Neutropenia [Unknown]
  - Neuropathy peripheral [Unknown]
  - Acute kidney injury [Unknown]
  - Acute coronary syndrome [Recovered/Resolved]
  - Atrial fibrillation [Recovered/Resolved]
  - Peripheral swelling [Unknown]
  - Upper respiratory tract infection [Recovered/Resolved]
  - Sepsis [Recovered/Resolved]
  - Lower respiratory tract infection [Recovered/Resolved]
  - Abdominal pain [Unknown]
  - Chronic obstructive pulmonary disease [Unknown]
  - Back pain [Unknown]
  - Thrombocytopenia [Unknown]
  - Spinal column stenosis [Unknown]
  - Constipation [Unknown]

NARRATIVE: CASE EVENT DATE: 20151112
